FAERS Safety Report 23084936 (Version 1)
Quarter: 2023Q4

REPORT INFORMATION
  Report Type: Spontaneous
  Country: UA (occurrence: UA)
  Receive Date: 20231019
  Receipt Date: 20231019
  Transmission Date: 20240109
  Serious: Yes (Hospitalization)
  Sender: FDA-Public Use
  Company Number: UA-Merck Healthcare KGaA-2023481462

PATIENT
  Age: 49 Year
  Sex: Male

DRUGS (3)
  1. EUTHYROX [Suspect]
     Active Substance: LEVOTHYROXINE SODIUM
     Indication: Hypothyroidism
     Route: 048
     Dates: start: 202307, end: 202309
  2. SPIRONOLACTONE [Concomitant]
     Active Substance: SPIRONOLACTONE
     Indication: Product used for unknown indication
  3. NEBIVOLOL [Concomitant]
     Active Substance: NEBIVOLOL
     Indication: Product used for unknown indication

REACTIONS (8)
  - Hypertension [Unknown]
  - Dyspnoea exertional [Unknown]
  - Hypothyroidism [Unknown]
  - Constipation [Unknown]
  - Dyslipidaemia [Unknown]
  - Oedema [Unknown]
  - Suspected counterfeit product [Unknown]
  - Drug ineffective [Unknown]

NARRATIVE: CASE EVENT DATE: 20230901
